FAERS Safety Report 4745435-2 (Version None)
Quarter: 2005Q3

REPORT INFORMATION
  Report Type: 
  Country: None (occurrence: None)
  Receive Date: 20050812
  Receipt Date: 20040917
  Transmission Date: 20060218
  Serious: Yes (Other)
  Sender: FDA-Public Use
  Company Number: PHEH2004US09246

PATIENT
  Age: 91 Year
  Sex: Female

DRUGS (5)
  1. VISUDYNE [Suspect]
     Indication: MACULAR DEGENERATION
     Dosage: 2 MG/ML  ONCE  IV
     Route: 042
     Dates: start: 20040816, end: 20040816
  2. DYAZIDE [Concomitant]
  3. PRED FORTE [Concomitant]
  4. SYNTHROID [Concomitant]
  5. LUMIGAN [Concomitant]

REACTIONS (1)
  - VISUAL ACUITY REDUCED [None]
